FAERS Safety Report 14996787 (Version 1)
Quarter: 2018Q2

REPORT INFORMATION
  Report Type: Report from Study
  Country: CA (occurrence: CA)
  Receive Date: 20180611
  Receipt Date: 20180611
  Transmission Date: 20180711
  Serious: Yes (Hospitalization)
  Sender: FDA-Public Use
  Company Number: CA-JNJFOC-20180328210

PATIENT
  Age: 65 Year
  Sex: Male

DRUGS (3)
  1. PREDNISONE. [Suspect]
     Active Substance: PREDNISONE
     Indication: PRODUCT USED FOR UNKNOWN INDICATION
     Route: 065
  2. ZYTIGA [Suspect]
     Active Substance: ABIRATERONE ACETATE
     Indication: PROSTATE CANCER METASTATIC
     Dosage: STRENGTH = 250 MG
     Route: 048
     Dates: start: 20180221, end: 20180513
  3. ZYTIGA [Suspect]
     Active Substance: ABIRATERONE ACETATE
     Indication: PROSTATE CANCER METASTATIC
     Route: 048
     Dates: start: 20180531, end: 20180601

REACTIONS (4)
  - Coronary artery occlusion [Unknown]
  - Diabetes mellitus inadequate control [Recovering/Resolving]
  - Cardiac failure [Not Recovered/Not Resolved]
  - Cardiac arrest [Unknown]

NARRATIVE: CASE EVENT DATE: 201804
